FAERS Safety Report 5837378-8 (Version None)
Quarter: 2008Q3

REPORT INFORMATION
  Report Type: 
  Country: None (occurrence: None)
  Receive Date: 20080807
  Receipt Date: 20080723
  Transmission Date: 20090109
  Serious: Yes (Other)
  Sender: FDA-Public Use
  Company Number: BE-PFIZER INC-2008061643

PATIENT
  Sex: Female
  Weight: 41 kg

DRUGS (6)
  1. CHANTIX [Suspect]
     Indication: EX-TOBACCO USER
     Route: 048
     Dates: start: 20080601, end: 20080714
  2. FOSAMAX [Suspect]
     Route: 048
     Dates: start: 20080601
  3. PAROXETINE HCL [Concomitant]
     Route: 048
  4. TRAZOLAN [Concomitant]
     Route: 048
  5. LORAMET [Concomitant]
     Route: 048
  6. ESTROGEL [Concomitant]
     Route: 062

REACTIONS (5)
  - HYPOALBUMINAEMIA [None]
  - NAUSEA [None]
  - OEDEMA PERIPHERAL [None]
  - PROTEINURIA [None]
  - VOMITING [None]
